FAERS Safety Report 12234043 (Version 3)
Quarter: 2017Q2

REPORT INFORMATION
  Report Type: Report from Study
  Country: US (occurrence: US)
  Receive Date: 20160404
  Receipt Date: 20170403
  Transmission Date: 20170830
  Serious: Yes (Hospitalization)
  Sender: FDA-Public Use
  Company Number: US-JNJFOC-20160328816

PATIENT
  Age: 77 Year
  Sex: Female

DRUGS (22)
  1. IMBRUVICA [Suspect]
     Active Substance: IBRUTINIB
     Indication: CHRONIC LYMPHOCYTIC LEUKAEMIA
     Route: 048
     Dates: start: 201611
  2. SELENIUM [Concomitant]
     Active Substance: SELENIUM
  3. VITAMIN B COMPLEX [Concomitant]
     Active Substance: CYANOCOBALAMIN\DEXPANTHENOL\NIACINAMIDE\PYRIDOXINE HYDROCHLORIDE\RIBOFLAVIN 5^-PHOSPHATE SODIUM\THIAMINE HYDROCHLORIDE\VITAMIN B COMPLEX
  4. ASPIRIN. [Concomitant]
     Active Substance: ASPIRIN
  5. VITAMIN B [Concomitant]
     Active Substance: VITAMIN B
  6. BIOTIN [Concomitant]
     Active Substance: BIOTIN
  7. CITRICAL [Concomitant]
     Active Substance: CALCIUM CITRATE
  8. CALCIUM [Concomitant]
     Active Substance: CALCIUM
  9. IMBRUVICA [Suspect]
     Active Substance: IBRUTINIB
     Indication: CHRONIC LYMPHOCYTIC LEUKAEMIA
     Route: 048
     Dates: start: 20151111, end: 20160318
  10. IMBRUVICA [Suspect]
     Active Substance: IBRUTINIB
     Indication: CHRONIC LYMPHOCYTIC LEUKAEMIA
     Route: 048
     Dates: start: 20160320
  11. PRILOSEC [Concomitant]
     Active Substance: OMEPRAZOLE MAGNESIUM
  12. CLARITIN [Concomitant]
     Active Substance: LORATADINE
  13. OMEPRAZOLE. [Concomitant]
     Active Substance: OMEPRAZOLE
  14. LUTIN [Concomitant]
  15. ANTIVERT [Concomitant]
     Active Substance: MECLIZINE HYDROCHLORIDE
  16. MULTIVITAMINS [Concomitant]
     Active Substance: VITAMINS
  17. VITAMIN B12 [Concomitant]
     Active Substance: CYANOCOBALAMIN
  18. VITAMIN D [Concomitant]
     Active Substance: CHOLECALCIFEROL
  19. ATIVAN [Concomitant]
     Active Substance: LORAZEPAM
  20. COMPAZINE [Concomitant]
     Active Substance: PROCHLORPERAZINE MALEATE
  21. MECLIZINE [Concomitant]
     Active Substance: MECLIZINE HYDROCHLORIDE
  22. BETAPACE [Concomitant]
     Active Substance: SOTALOL HYDROCHLORIDE

REACTIONS (8)
  - Deafness [Not Recovered/Not Resolved]
  - Diarrhoea [Recovered/Resolved]
  - Labyrinthitis [Unknown]
  - Atrial fibrillation [Unknown]
  - Nausea [Recovered/Resolved]
  - Muscle spasms [Not Recovered/Not Resolved]
  - Petechiae [Unknown]
  - Dizziness [Not Recovered/Not Resolved]

NARRATIVE: CASE EVENT DATE: 201603
